FAERS Safety Report 18854707 (Version 5)
Quarter: 2021Q3

REPORT INFORMATION
  Report Type: Report from Study
  Country: CA (occurrence: CA)
  Receive Date: 20210205
  Receipt Date: 20210708
  Transmission Date: 20211014
  Serious: Yes (Other)
  Sender: FDA-Public Use
  Company Number: CA-BRISTOL-MYERS SQUIBB COMPANY-BMS-2021-009252

PATIENT
  Age: 81 Year
  Sex: Male

DRUGS (3)
  1. FOLIC ACID. [Concomitant]
     Active Substance: FOLIC ACID
     Indication: PRODUCT USED FOR UNKNOWN INDICATION
     Dosage: UNK
     Route: 065
  2. NIVOLUMAB [Suspect]
     Active Substance: NIVOLUMAB
     Indication: PLEURAL MESOTHELIOMA
     Dosage: 222 MILLIGRAM, Q2WK
     Route: 042
     Dates: start: 20210115
  3. VITAMIN D [COLECALCIFEROL] [Concomitant]
     Active Substance: CHOLECALCIFEROL
     Indication: PRODUCT USED FOR UNKNOWN INDICATION
     Dosage: UNK
     Route: 065

REACTIONS (11)
  - Wheezing [Unknown]
  - Dry mouth [Unknown]
  - Dyspnoea [Recovered/Resolved]
  - Intentional product use issue [Unknown]
  - Haemoptysis [Unknown]
  - Chills [Recovered/Resolved]
  - Fatigue [Unknown]
  - Tremor [Unknown]
  - Hypoaesthesia [Unknown]
  - Malignant neoplasm progression [Unknown]
  - Pain in extremity [Unknown]

NARRATIVE: CASE EVENT DATE: 20210128
